FAERS Safety Report 5941609-3 (Version None)
Quarter: 2008Q4

REPORT INFORMATION
  Report Type: 
  Country: None (occurrence: None)
  Receive Date: 20081104
  Receipt Date: 20081104
  Transmission Date: 20090506
  Serious: Yes (Hospitalization)
  Sender: FDA-Public Use
  Company Number: None

PATIENT
  Age: 66 Year
  Sex: Male
  Weight: 155 kg

DRUGS (2)
  1. AMIODARONE HYDROCHLORIDE [Suspect]
     Indication: ATRIAL FLUTTER
     Dosage: 1MG/MIN NA IV DRIP 400MG Q12H PO
     Route: 041
     Dates: start: 20080126, end: 20080127
  2. AMIODARONE HYDROCHLORIDE [Suspect]
     Indication: ATRIAL FLUTTER
     Dosage: 1MG/MIN NA IV DRIP 400MG Q12H PO
     Route: 041
     Dates: start: 20080127, end: 20080131

REACTIONS (3)
  - TORSADE DE POINTES [None]
  - VENTRICULAR EXTRASYSTOLES [None]
  - VENTRICULAR FIBRILLATION [None]
